FAERS Safety Report 6883295-4 (Version None)
Quarter: 2010Q3

REPORT INFORMATION
  Report Type: 
  Country: None (occurrence: None)
  Receive Date: 20100727
  Receipt Date: 20071004
  Transmission Date: 20110219
  Serious: Yes (Hospitalization, Other)
  Sender: FDA-Public Use
  Company Number: US-PFIZER INC-2006102867

PATIENT
  Sex: Male
  Weight: 103 kg

DRUGS (7)
  1. CELEBREX [Suspect]
     Indication: PAIN
     Dosage: FREQUENCY: 1-2
     Route: 048
     Dates: start: 19990421
  2. CELEBREX [Suspect]
     Indication: ARTHRITIS
  3. VIOXX [Suspect]
     Indication: ARTHRITIS
     Route: 048
     Dates: start: 20000128
  4. VIOXX [Suspect]
     Indication: PAIN
  5. ULTRAM [Concomitant]
     Indication: PAIN
     Dates: start: 19970721, end: 20000801
  6. LORCET-HD [Concomitant]
     Indication: PAIN
     Dates: start: 19970820, end: 20060126
  7. SOMA [Concomitant]
     Indication: PAIN
     Dates: start: 19970820, end: 20000301

REACTIONS (1)
  - MYOCARDIAL INFARCTION [None]
